FAERS Safety Report 6122522-8 (Version None)
Quarter: 2009Q1

REPORT INFORMATION
  Report Type: 
  Country: None (occurrence: None)
  Receive Date: 20090318
  Receipt Date: 20081111
  Transmission Date: 20090719
  Serious: No
  Sender: FDA-Public Use
  Company Number: US-ASTRAZENECA-2008UW25281

PATIENT
  Age: 74 Year
  Sex: Male

DRUGS (2)
  1. SYMBICORT [Suspect]
     Dosage: 160/4.5 MCG 2 PUFFS BID
     Route: 055
  2. ALBUTEROL [Concomitant]

REACTIONS (2)
  - CHEST DISCOMFORT [None]
  - RASH [None]
